FAERS Safety Report 6584177-8 (Version None)
Quarter: 2010Q1

REPORT INFORMATION
  Report Type: 
  Country: None (occurrence: None)
  Receive Date: 20100216
  Receipt Date: 20100209
  Transmission Date: 20100710
  Serious: Yes (Death)
  Sender: FDA-Public Use
  Company Number: IT-JNJFOC-20100204041

PATIENT
  Sex: Female

DRUGS (3)
  1. RISPERDAL [Suspect]
     Indication: SCHIZOPHRENIA
     Route: 030
  2. RISPERDAL [Suspect]
     Route: 030
  3. AKINETON [Suspect]
     Indication: MOTOR DYSFUNCTION
     Route: 065

REACTIONS (2)
  - COMPLETED SUICIDE [None]
  - MOTOR DYSFUNCTION [None]
